FAERS Safety Report 21029640 (Version 2)
Quarter: 2022Q3

REPORT INFORMATION
  Report Type: Spontaneous
  Country: US (occurrence: US)
  Receive Date: 20220630
  Receipt Date: 20220712
  Transmission Date: 20221027
  Serious: No
  Sender: FDA-Public Use
  Company Number: US-JNJFOC-20220649666

PATIENT
  Age: 101 Year
  Sex: Male

DRUGS (1)
  1. ZYTIGA [Suspect]
     Active Substance: ABIRATERONE ACETATE
     Indication: Product used for unknown indication
     Dosage: 2-500 MG TABLETS PER DAY
     Route: 048
     Dates: start: 20220314, end: 20220622

REACTIONS (1)
  - Adverse drug reaction [Not Recovered/Not Resolved]
